FAERS Safety Report 6129556-8 (Version None)
Quarter: 2009Q1

REPORT INFORMATION
  Report Type: 
  Country: None (occurrence: None)
  Receive Date: 20090324
  Receipt Date: 20090311
  Transmission Date: 20090719
  Serious: Yes (Hospitalization)
  Sender: FDA-Public Use
  Company Number: JP-PFIZER INC-2009185755

PATIENT

DRUGS (11)
  1. SILDENAFIL CITRATE [Suspect]
     Indication: PULMONARY ARTERIAL HYPERTENSION
     Dosage: 20 MG, 3X/DAY
     Dates: start: 20080508, end: 20080523
  2. BERAPROST SODIUM [Concomitant]
     Route: 048
     Dates: start: 20080314
  3. WARFARIN ^ORION^ [Concomitant]
     Route: 048
  4. ALDACTONE [Concomitant]
     Route: 048
  5. ALFAROL [Concomitant]
     Route: 048
  6. PARIET [Concomitant]
     Route: 048
  7. CINAL [Concomitant]
     Route: 046
     Dates: end: 20080521
  8. SELBEX [Concomitant]
     Route: 048
  9. PREDONINE [Concomitant]
     Route: 048
  10. BASEN [Concomitant]
     Route: 048
  11. BENAMBAX [Concomitant]

REACTIONS (1)
  - PLATELET COUNT DECREASED [None]
